FAERS Safety Report 9448736 (Version 1)
Quarter: 2013Q3

REPORT INFORMATION
  Report Type: Spontaneous
  Country: US (occurrence: US)
  Receive Date: 20130808
  Receipt Date: 20130808
  Transmission Date: 20140515
  Serious: No
  Sender: FDA-Public Use
  Company Number: US-BAUSCH-BL-2013-003280

PATIENT
  Age: 54 Year
  Sex: Female

DRUGS (3)
  1. CROMOLYN SODIUM NASAL SOLUTION USP [Suspect]
     Indication: SEASONAL ALLERGY
     Dosage: 1 SPRAY IN LEFT NOSTRIL, ONCE DAILY
     Route: 045
     Dates: start: 201303
  2. CROMOLYN SODIUM NASAL SOLUTION USP [Suspect]
     Dosage: 1 SPRAY IN RIGHT NOSTRIL, ONCE DAILY
     Route: 045
     Dates: start: 201303
  3. LIPITOR [Concomitant]

REACTIONS (3)
  - Hypervigilance [Recovered/Resolved]
  - Anxiety [Recovered/Resolved]
  - Epistaxis [Not Recovered/Not Resolved]
